FAERS Safety Report 6539273-8 (Version None)
Quarter: 2010Q1

REPORT INFORMATION
  Report Type: 
  Country: None (occurrence: None)
  Receive Date: 20100115
  Receipt Date: 20100112
  Transmission Date: 20100710
  Serious: Yes (Life-Threatening, Hospitalization)
  Sender: FDA-Public Use
  Company Number: RU-ROCHE-673308

PATIENT
  Sex: Female
  Weight: 66 kg

DRUGS (7)
  1. CAPECITABINE [Suspect]
     Indication: BREAST CANCER
     Dosage: LAST DOSE PRIOR TO SAE: 26 NOVEMBER 2009.
     Route: 048
     Dates: start: 20090818, end: 20091203
  2. CAPECITABINE [Suspect]
     Route: 048
     Dates: start: 20091214
  3. BEVACIZUMAB [Suspect]
     Indication: BREAST CANCER
     Dosage: ROUTE: IV INFUSION. FORM: INFUSION SOLUTION, LAST DOSE PRIOR TO SAE: 12 NOVEMBER 2009.
     Route: 042
     Dates: start: 20090818, end: 20091203
  4. TRASTUZUMAB [Suspect]
     Indication: BREAST CANCER
     Dosage: ROUTE: IV INFUSION. FORM: INFUSION SOLUTION, LAST DOSE PRIOR TO SAE: 12 NOVEMBER 2009.
     Route: 042
     Dates: start: 20090818, end: 20091203
  5. TRASTUZUMAB [Suspect]
     Route: 042
     Dates: start: 20091214
  6. WARFARIN SODIUM [Suspect]
     Indication: DRUG USE FOR UNKNOWN INDICATION
     Route: 065
     Dates: start: 20090930, end: 20091203
  7. HEPARIN [Concomitant]
     Dates: start: 20090921, end: 20090930

REACTIONS (1)
  - HAEMATURIA [None]
